FAERS Safety Report 8396044-8 (Version None)
Quarter: 2012Q2

REPORT INFORMATION
  Report Type: 
  Country: None (occurrence: None)
  Receive Date: 20120530
  Receipt Date: 20120525
  Transmission Date: 20120825
  Serious: No
  Sender: FDA-Public Use
  Company Number: US-PFIZER INC-2012127310

PATIENT
  Sex: Female
  Weight: 100 kg

DRUGS (2)
  1. ADVIL MIGRAINE LIQUI-GELS [Suspect]
     Indication: HEADACHE
     Dosage: 3 DF, UNK
     Route: 048
     Dates: start: 20120525
  2. IBUPROFEN (ADVIL) [Suspect]
     Indication: HEADACHE
     Dosage: 3 DF, UNK
     Route: 048
     Dates: start: 20120525

REACTIONS (3)
  - FEELING ABNORMAL [None]
  - DIZZINESS [None]
  - PARAESTHESIA [None]
